FAERS Safety Report 24048206 (Version 2)
Quarter: 2024Q3

REPORT INFORMATION
  Report Type: Spontaneous
  Country: BR (occurrence: BR)
  Receive Date: 20240703
  Receipt Date: 20240711
  Transmission Date: 20241016
  Serious: Yes (Other)
  Sender: CELLTRION
  Company Number: BR-CELLTRION INC.-2024BR015767

PATIENT

DRUGS (5)
  1. INFLIXIMAB [Suspect]
     Active Substance: INFLIXIMAB
     Indication: Crohn^s disease
     Dosage: WAS 5 AMPOULES EVERY 8 WEEKS
     Route: 042
  2. INFLIXIMAB [Suspect]
     Active Substance: INFLIXIMAB
     Dosage: 11 AMPOULES EVERY 8 WEEKS
     Route: 042
     Dates: start: 20230419
  3. INFLIXIMAB [Suspect]
     Active Substance: INFLIXIMAB
     Dosage: 6 AMPOULES EVERY 30 DAYS
     Route: 042
  4. FLORATIL [SACCHAROMYCES BOULARDII] [Concomitant]
     Dosage: BID, FOR THREE DAYS
  5. DIPYRONE [Concomitant]
     Active Substance: DIPYRONE
     Indication: Pain
     Dosage: UNK

REACTIONS (17)
  - Crohn^s disease [Unknown]
  - Abdominal discomfort [Recovered/Resolved]
  - Defaecation urgency [Not Recovered/Not Resolved]
  - Micturition urgency [Not Recovered/Not Resolved]
  - Nausea [Recovered/Resolved]
  - Pain [Unknown]
  - Arthralgia [Unknown]
  - Abdominal pain [Unknown]
  - Vomiting [Not Recovered/Not Resolved]
  - Diarrhoea [Not Recovered/Not Resolved]
  - Drug ineffective [Unknown]
  - Product prescribing issue [Unknown]
  - Therapy interrupted [Unknown]
  - Product substitution issue [Unknown]
  - Intentional product use issue [Unknown]
  - Intentional product use issue [Not Recovered/Not Resolved]
  - Intentional product use issue [Unknown]

NARRATIVE: CASE EVENT DATE: 20240527
